FAERS Safety Report 20842157 (Version 1)
Quarter: 2022Q2

REPORT INFORMATION
  Report Type: Spontaneous
  Country: US (occurrence: US)
  Receive Date: 20220518
  Receipt Date: 20220518
  Transmission Date: 20220720
  Serious: No
  Sender: FDA-Public Use
  Company Number: US-JNJFOC-20220531444

PATIENT
  Age: 8 Decade
  Sex: Male

DRUGS (2)
  1. ERLEADA [Suspect]
     Active Substance: APALUTAMIDE
     Indication: Product used for unknown indication
     Route: 048
     Dates: start: 20200204
  2. ERLEADA [Suspect]
     Active Substance: APALUTAMIDE
     Dosage: 2 TABLETS TWICE DAILY: 2 IN THE MORNING AND 2 AT NIGHT
     Route: 048

REACTIONS (3)
  - Diarrhoea [Unknown]
  - Product use issue [Unknown]
  - Off label use [Unknown]
